FAERS Safety Report 16963673 (Version 1)
Quarter: 2019Q4

REPORT INFORMATION
  Report Type: Spontaneous
  Country: CA (occurrence: CA)
  Receive Date: 20191025
  Receipt Date: 20191025
  Transmission Date: 20200122
  Serious: Yes (Other)
  Sender: FDA-Public Use
  Company Number: CA-TEVA-2019-CA-1126771

PATIENT
  Age: 25 Year
  Sex: Female
  Weight: 50 kg

DRUGS (2)
  1. ELETRIPTAN HYDROBROMIDE. [Suspect]
     Active Substance: ELETRIPTAN HYDROBROMIDE
     Indication: PRODUCT USED FOR UNKNOWN INDICATION
     Dosage: 40 MILLIGRAM DAILY;
     Route: 065
  2. ETHINYL ESTRADIOL/LEVONORGESTREL [Concomitant]
     Active Substance: ETHINYL ESTRADIOL\LEVONORGESTREL

REACTIONS (5)
  - Throat tightness [Recovered/Resolved]
  - Chest discomfort [Recovered/Resolved]
  - Pain in jaw [Recovered/Resolved]
  - Swelling face [Recovered/Resolved]
  - Drug ineffective [Recovered/Resolved]
